FAERS Safety Report 13963877 (Version 1)
Quarter: 2017Q3

REPORT INFORMATION
  Report Type: Spontaneous
  Country: JP (occurrence: JP)
  Receive Date: 20170913
  Receipt Date: 20170913
  Transmission Date: 20171128
  Serious: Yes (Death, Life-Threatening, Other)
  Sender: FDA-Public Use
  Company Number: JP-CELGENEUS-JPN-20170902854

PATIENT

DRUGS (2)
  1. REVLIMID [Suspect]
     Active Substance: LENALIDOMIDE
     Dosage: 15 MG
     Route: 048
  2. REVLIMID [Suspect]
     Active Substance: LENALIDOMIDE
     Indication: PLASMA CELL MYELOMA
     Dosage: 10MG FOR 3 MONTHS
     Route: 048

REACTIONS (8)
  - Diarrhoea [Unknown]
  - Fatigue [Unknown]
  - Febrile neutropenia [Unknown]
  - Infection [Fatal]
  - Conduction disorder [Unknown]
  - Pain [Unknown]
  - Angiopathy [Fatal]
  - Rash [Unknown]
